FAERS Safety Report 8608090-7 (Version None)
Quarter: 2012Q3

REPORT INFORMATION
  Report Type: 
  Country: None (occurrence: None)
  Receive Date: 20120821
  Receipt Date: 20120814
  Transmission Date: 20120928
  Serious: Yes (Other)
  Sender: FDA-Public Use
  Company Number: PHHY2012FR058598

PATIENT
  Sex: Male
  Weight: 91 kg

DRUGS (2)
  1. XATRAL EXTENDED RELEASE [Concomitant]
     Indication: PROSTATITIS
     Dosage: 10 MG, DAILY
     Dates: start: 19970101
  2. TASIGNA [Suspect]
     Indication: CHRONIC MYELOID LEUKAEMIA
     Dosage: 400 MG, BID
     Route: 048
     Dates: start: 20110414, end: 20110426

REACTIONS (6)
  - ATRIAL FIBRILLATION [None]
  - ASTHENIA [None]
  - ATRIAL TACHYCARDIA [None]
  - PYREXIA [None]
  - ABDOMINAL PAIN [None]
  - MUSCULOSKELETAL STIFFNESS [None]
